FAERS Safety Report 13347558 (Version 1)
Quarter: 2017Q1

REPORT INFORMATION
  Report Type: Report from Study
  Country: None (occurrence: BR)
  Receive Date: 20170317
  Receipt Date: 20170317
  Transmission Date: 20170428
  Serious: Yes (Other)
  Sender: FDA-Public Use
  Company Number: BR-ABBVIE-17P-020-1910596-00

PATIENT
  Sex: Female
  Weight: 69 kg

DRUGS (10)
  1. SYNTHROID [Suspect]
     Active Substance: LEVOTHYROXINE SODIUM
     Indication: HYPOTHYROIDISM
     Dosage: FREQUENCY: IN THE MORNING
     Route: 048
     Dates: start: 2008
  2. YAZ [Concomitant]
     Active Substance: DROSPIRENONE\ETHINYL ESTRADIOL
     Indication: CONTRACEPTION
  3. AMINO ACIDS NOS [Concomitant]
     Indication: NUTRITIONAL SUPPLEMENTATION
  4. BIOTIN [Concomitant]
     Active Substance: BIOTIN
     Indication: NUTRITIONAL SUPPLEMENTATION
  5. TENAVIT [Concomitant]
     Indication: HYPERSENSITIVITY
     Dates: start: 20170308
  6. BIOTIN [Concomitant]
     Active Substance: BIOTIN
     Indication: NUTRITIONAL SUPPLEMENTATION
  7. VITAMIN E [Concomitant]
     Active Substance: .ALPHA.-TOCOPHEROL
     Indication: VITAMIN SUPPLEMENTATION
  8. BUP [Concomitant]
     Active Substance: BUPROPION HYDROCHLORIDE
     Indication: ANXIETY
     Dates: start: 201510, end: 201512
  9. BUP [Concomitant]
     Active Substance: BUPROPION HYDROCHLORIDE
     Indication: NICOTINE DEPENDENCE
  10. COLLAGEN [Concomitant]
     Active Substance: COLLAGEN
     Indication: NUTRITIONAL SUPPLEMENTATION

REACTIONS (4)
  - Tobacco user [Recovered/Resolved]
  - Inappropriate schedule of drug administration [Unknown]
  - Weight increased [Not Recovered/Not Resolved]
  - Benign neoplasm of thyroid gland [Unknown]

NARRATIVE: CASE EVENT DATE: 2014
